FAERS Safety Report 5139279-X (Version None)
Quarter: 2006Q4

REPORT INFORMATION
  Report Type: 
  Country: None (occurrence: None)
  Receive Date: 20061030
  Receipt Date: 20061024
  Transmission Date: 20070319
  Serious: Yes (Other)
  Sender: FDA-Public Use
  Company Number: 2006UW20528

PATIENT
  Age: 81 Year
  Sex: Female
  Weight: 54 kg

DRUGS (4)
  1. ARIMIDEX [Suspect]
     Indication: BREAST CANCER
     Route: 048
  2. LEVOXYL [Concomitant]
  3. DIOVAN [Concomitant]
  4. JOINT VIBRANCE [Concomitant]

REACTIONS (8)
  - ARTHRALGIA [None]
  - ASTHENIA [None]
  - BLOOD PRESSURE INCREASED [None]
  - DYSSTASIA [None]
  - HIP ARTHROPLASTY [None]
  - PARANASAL SINUS DISCOMFORT [None]
  - RHINORRHOEA [None]
  - SINUS DISORDER [None]
